FAERS Safety Report 8252327-3 (Version None)
Quarter: 2012Q2

REPORT INFORMATION
  Report Type: 
  Country: None (occurrence: None)
  Receive Date: 20120402
  Receipt Date: 20110502
  Transmission Date: 20120825
  Serious: No
  Sender: FDA-Public Use
  Company Number: US-ABBOTT-11P-163-0804524-00

PATIENT
  Sex: Male

DRUGS (3)
  1. HYDROCODONE BITARTRATE AND PARACETAMOL [Concomitant]
     Indication: BACK PAIN
     Dosage: DAILY DOSE:  UNKNOWN
     Route: 065
  2. METFORMIN [Concomitant]
     Indication: PRODUCT USED FOR UNKNOWN INDICATION
     Dosage: DAILY DOSE:  UNKNOWN
     Route: 065
  3. TESTOSTERONE [Suspect]
     Indication: BLOOD TESTOSTERONE DECREASED
     Dosage: DAILY DOSE:  ONE PACKAGE
     Route: 062
     Dates: start: 20110201, end: 20110401

REACTIONS (1)
  - CHILLS [None]
